FAERS Safety Report 5973210-X (Version None)
Quarter: 2008Q4

REPORT INFORMATION
  Report Type: 
  Country: None (occurrence: None)
  Receive Date: 20081201
  Receipt Date: 20081119
  Transmission Date: 20090506
  Serious: Yes (Hospitalization)
  Sender: FDA-Public Use
  Company Number: FR-ELI_LILLY_AND_COMPANY-FR200810002416

PATIENT
  Age: 79 Year
  Sex: Female

DRUGS (6)
  1. FORTEO [Suspect]
     Indication: OSTEOPOROSIS
     Dosage: 20 UG, DAILY (1/D)
     Route: 065
     Dates: start: 20080101, end: 20080906
  2. FORTEO [Suspect]
     Dosage: 20 UG, DAILY (1/D)
     Route: 065
  3. PLAVIX [Concomitant]
     Indication: ENDARTERECTOMY
     Dosage: 1 DSGF, DAILY
     Route: 048
     Dates: start: 20051208
  4. LEVOTHYROX [Concomitant]
     Indication: THYROIDECTOMY
     Dosage: 87.5 UG, DAILY (1/D)
     Route: 048
     Dates: start: 19800102
  5. MICARDIS [Concomitant]
     Indication: HYPERTENSION
     Dosage: 1 DSGF, DAILY (1/D)
     Route: 048
     Dates: start: 20000101
  6. PRAVASTATIN [Concomitant]
     Indication: DYSLIPIDAEMIA
     Dosage: 1 DSGF
     Route: 048
     Dates: start: 20000101

REACTIONS (1)
  - ESCHERICHIA SEPSIS [None]
